FAERS Safety Report 17729452 (Version 2)
Quarter: 2020Q2

REPORT INFORMATION
  Report Type: Report from Study
  Country: CA (occurrence: CA)
  Receive Date: 20200430
  Receipt Date: 20200612
  Transmission Date: 20200714
  Serious: Yes (Other)
  Sender: FDA-Public Use
  Company Number: NVSC2019CA033872

PATIENT
  Age: 10 Year
  Sex: Female

DRUGS (9)
  1. ILARIS [Suspect]
     Active Substance: CANAKINUMAB
     Indication: STILL^S DISEASE
     Dosage: 150 MG, Q4W
     Route: 058
     Dates: start: 20191009
  2. ILARIS [Suspect]
     Active Substance: CANAKINUMAB
     Dosage: 200 MG, Q4W
     Route: 058
     Dates: start: 20191129
  3. ILARIS [Suspect]
     Active Substance: CANAKINUMAB
     Dosage: 220 OT, Q4W
     Route: 065
     Dates: start: 20200108
  4. ILARIS [Suspect]
     Active Substance: CANAKINUMAB
     Dosage: 220 MG, Q3W
     Route: 058
     Dates: start: 20191009
  5. ILARIS [Suspect]
     Active Substance: CANAKINUMAB
     Dosage: 150 MG, Q4W
     Route: 058
     Dates: start: 20191106
  6. ILARIS [Suspect]
     Active Substance: CANAKINUMAB
     Dosage: 220 MG, Q4W
     Route: 058
     Dates: start: 20191213
  7. ILARIS [Suspect]
     Active Substance: CANAKINUMAB
     Dosage: UNK
     Route: 065
     Dates: start: 20200519, end: 20200609
  8. ILARIS [Suspect]
     Active Substance: CANAKINUMAB
     Dosage: 220 MG, Q3W
     Route: 058
     Dates: start: 20200428
  9. ILARIS [Suspect]
     Active Substance: CANAKINUMAB
     Dosage: 220 OT, Q4W
     Route: 058
     Dates: start: 20200225

REACTIONS (13)
  - Cough [Unknown]
  - Condition aggravated [Unknown]
  - Musculoskeletal discomfort [Unknown]
  - Fatigue [Unknown]
  - Abdominal discomfort [Unknown]
  - Still^s disease [Unknown]
  - Pallor [Recovered/Resolved]
  - Abdominal pain upper [Unknown]
  - Malaise [Unknown]
  - Asthenia [Recovered/Resolved]
  - Infection [Unknown]
  - Inappropriate schedule of product administration [Unknown]
  - Lethargy [Recovered/Resolved]

NARRATIVE: CASE EVENT DATE: 201911
